FAERS Safety Report 17864198 (Version 1)
Quarter: 2020Q2

REPORT INFORMATION
  Report Type: Spontaneous
  Country: KR (occurrence: KR)
  Receive Date: 20200605
  Receipt Date: 20200605
  Transmission Date: 20200714
  Serious: Yes (Other)
  Sender: FDA-Public Use
  Company Number: NVSC2020KR152989

PATIENT
  Age: 49 Year
  Sex: Male

DRUGS (2)
  1. QUETIAPINE. [Suspect]
     Active Substance: QUETIAPINE
     Indication: SLEEP DISORDER
     Dosage: 25 MG
     Route: 065
  2. QUETIAPINE. [Suspect]
     Active Substance: QUETIAPINE
     Indication: BEHAVIOUR DISORDER
     Dosage: 50 UNK
     Route: 065

REACTIONS (5)
  - Aggression [Unknown]
  - Inappropriate antidiuretic hormone secretion [Recovered/Resolved]
  - Sleep disorder [Unknown]
  - Delirium [Unknown]
  - Irritability [Unknown]
